FAERS Safety Report 5476590-7 (Version None)
Quarter: 2007Q4

REPORT INFORMATION
  Report Type: 
  Country: None (occurrence: None)
  Receive Date: 20071004
  Receipt Date: 20071001
  Transmission Date: 20080405
  Serious: No
  Sender: FDA-Public Use
  Company Number: PHEH2007US10852

PATIENT
  Age: 81 Year
  Sex: Female
  Weight: 60 kg

DRUGS (4)
  1. FEMARA [Suspect]
     Indication: BREAST CANCER
     Dosage: 2.5 MG, UNK
     Route: 048
     Dates: start: 20060601
  2. ZOCOR [Concomitant]
     Indication: HYPERLIPIDAEMIA
     Dates: start: 20060101
  3. SYNTHROID [Suspect]
  4. FOSAMAX [Concomitant]
     Indication: OSTEOPENIA

REACTIONS (3)
  - AMNESIA [None]
  - FATIGUE [None]
  - PAIN IN EXTREMITY [None]
